FAERS Safety Report 4850526-1 (Version None)
Quarter: 2005Q4

REPORT INFORMATION
  Report Type: 
  Country: None (occurrence: None)
  Receive Date: 20051208
  Receipt Date: 20051125
  Transmission Date: 20060501
  Serious: Yes (Death)
  Sender: FDA-Public Use
  Company Number: 2005089676

PATIENT
  Age: 86 Year

DRUGS (4)
  1. ARTHROTEC [Suspect]
     Indication: ILL-DEFINED DISORDER
     Dosage: 100 MG (500 MG, 2 IN 1 D), ORAL
     Route: 048
  2. ACETAMINOPHEN W/ CODEINE [Concomitant]
  3. FERROUS SULPHATE (FERROUS SULPHATE) [Concomitant]
  4. VITAMIN B12 [Concomitant]

REACTIONS (2)
  - GASTROINTESTINAL HAEMORRHAGE [None]
  - HAEMOGLOBIN DECREASED [None]
